FAERS Safety Report 14120223 (Version 1)
Quarter: 2017Q4

REPORT INFORMATION
  Report Type: Spontaneous
  Country: US (occurrence: US)
  Receive Date: 20171024
  Receipt Date: 20171024
  Transmission Date: 20180321
  Serious: Yes (Other)
  Sender: FDA-Public Use
  Company Number: US-APOTEX-2017AP020251

PATIENT
  Age: 59 Year
  Sex: Male

DRUGS (5)
  1. DEXAMETHASONE. [Suspect]
     Active Substance: DEXAMETHASONE
     Indication: PARANEOPLASTIC PEMPHIGUS
     Dosage: UNK
     Route: 065
  2. VANCOMYCIN HCL [Suspect]
     Active Substance: VANCOMYCIN HYDROCHLORIDE
     Indication: PARANEOPLASTIC PEMPHIGUS
     Dosage: UNK
     Route: 065
  3. MICAFUNGIN [Suspect]
     Active Substance: MICAFUNGIN
     Indication: PARANEOPLASTIC PEMPHIGUS
     Dosage: UNK
     Route: 065
  4. CEFEPIME [Suspect]
     Active Substance: CEFEPIME HYDROCHLORIDE
     Indication: PARANEOPLASTIC PEMPHIGUS
     Dosage: UNK
     Route: 065
  5. VALACYCLOVIR TABLETS USP [Suspect]
     Active Substance: VALACYCLOVIR HYDROCHLORIDE
     Indication: PARANEOPLASTIC PEMPHIGUS
     Dosage: UNK
     Route: 065

REACTIONS (1)
  - Drug ineffective [Unknown]
